FAERS Safety Report 9095520 (Version 3)
Quarter: 2013Q1

REPORT INFORMATION
  Report Type: Spontaneous
  Country: GB (occurrence: None)
  Receive Date: 20130123
  Receipt Date: 20130325
  Transmission Date: 20140127
  Serious: Yes (Other)
  Sender: FDA-Public Use
  Company Number: GER/UKI/13/0027480

PATIENT
  Sex: Male

DRUGS (1)
  1. CIPROFLOXACIN (CIPROFLOXACIN) [Suspect]
     Indication: PROSTATITIS
     Route: 048
     Dates: start: 20121019

REACTIONS (10)
  - Tendonitis [None]
  - Arthralgia [None]
  - Muscle twitching [None]
  - Candida infection [None]
  - Malaise [None]
  - Fatigue [None]
  - Headache [None]
  - Nausea [None]
  - Quality of life decreased [None]
  - Musculoskeletal stiffness [None]
